FAERS Safety Report 4860528-7 (Version None)
Quarter: 2005Q4

REPORT INFORMATION
  Report Type: 
  Country: None (occurrence: None)
  Receive Date: 20051216
  Receipt Date: 20051202
  Transmission Date: 20060501
  Serious: Yes (Hospitalization)
  Sender: FDA-Public Use
  Company Number: USA0506101535

PATIENT
  Age: 40 Year
  Sex: Female
  Weight: 105.2 kg

DRUGS (2)
  1. CYMBALTA [Suspect]
     Indication: STRESS
     Dosage: 30 MG,
     Dates: start: 20050501, end: 20050101
  2. HYDROCHLOROTHIAZIDE [Concomitant]

REACTIONS (10)
  - ANOREXIA [None]
  - ARTHRALGIA [None]
  - CYTOMEGALOVIRUS INFECTION [None]
  - DEPRESSION [None]
  - EPSTEIN-BARR VIRUS INFECTION [None]
  - HEADACHE [None]
  - HEPATITIS B [None]
  - HYPERSOMNIA [None]
  - NERVOUSNESS [None]
  - WEIGHT INCREASED [None]
